FAERS Safety Report 25436181 (Version 2)
Quarter: 2025Q2

REPORT INFORMATION
  Report Type: Report from Study
  Country: CO (occurrence: CO)
  Receive Date: 20250614
  Receipt Date: 20250623
  Transmission Date: 20250717
  Serious: Yes (Hospitalization, Other)
  Sender: ALEXION PHARMACEUTICALS
  Company Number: CO-AstraZeneca-CH-00888622A

PATIENT
  Age: 82 Year
  Weight: 61 kg

DRUGS (1)
  1. ACALABRUTINIB [Suspect]
     Active Substance: ACALABRUTINIB
     Indication: Chronic lymphocytic leukaemia
     Dosage: 100 MILLIGRAM, QD

REACTIONS (5)
  - Asthenia [Unknown]
  - Acquired haemophilia [Unknown]
  - Haemoglobin decreased [Unknown]
  - Epistaxis [Unknown]
  - Discouragement [Unknown]
